FAERS Safety Report 7281389-5 (Version None)
Quarter: 2011Q1

REPORT INFORMATION
  Report Type: 
  Country: None (occurrence: None)
  Receive Date: 20110208
  Receipt Date: 20110128
  Transmission Date: 20110831
  Serious: Yes (Hospitalization)
  Sender: FDA-Public Use
  Company Number: FR-JNJFOC-20110200098

PATIENT
  Sex: Male
  Weight: 68.6 kg

DRUGS (5)
  1. USTEKINUMAB [Suspect]
     Route: 058
  2. USTEKINUMAB [Suspect]
     Indication: PSORIASIS
     Route: 058
  3. USTEKINUMAB [Suspect]
     Route: 058
  4. METHOTREXATE [Suspect]
     Indication: PSORIASIS
  5. PARACETAMOL [Concomitant]
     Route: 048

REACTIONS (2)
  - ABSCESS [None]
  - PILONIDAL CYST [None]
